FAERS Safety Report 25190533 (Version 3)
Quarter: 2025Q3

REPORT INFORMATION
  Report Type: Spontaneous
  Country: CA (occurrence: CA)
  Receive Date: 20250411
  Receipt Date: 20250702
  Transmission Date: 20251020
  Serious: Yes (Life-Threatening, Hospitalization, Other)
  Sender: SANOFI AVENTIS
  Company Number: CA-SA-2025SA102386

PATIENT
  Age: 7 Year
  Sex: Male
  Weight: 21.4 kg

DRUGS (34)
  1. ALEMTUZUMAB [Suspect]
     Active Substance: ALEMTUZUMAB
     Indication: Bone marrow conditioning regimen
     Route: 042
     Dates: start: 20240617, end: 20240619
  2. ALEMTUZUMAB [Suspect]
     Active Substance: ALEMTUZUMAB
     Indication: Bone marrow transplant
  3. FLUDARABINE PHOSPHATE [Suspect]
     Active Substance: FLUDARABINE PHOSPHATE
     Indication: Bone marrow conditioning regimen
     Route: 042
     Dates: start: 20240618, end: 20240622
  4. FLUDARABINE PHOSPHATE [Suspect]
     Active Substance: FLUDARABINE PHOSPHATE
     Indication: Bone marrow transplant
  5. BUSULFAN [Suspect]
     Active Substance: BUSULFAN
     Indication: Bone marrow conditioning regimen
     Route: 042
     Dates: start: 20240620, end: 20240622
  6. BUSULFAN [Suspect]
     Active Substance: BUSULFAN
     Indication: Bone marrow transplant
  7. RITUXIMAB [Suspect]
     Active Substance: RITUXIMAB
     Indication: Bone marrow conditioning regimen
     Route: 042
     Dates: start: 20240623, end: 20240623
  8. RITUXIMAB [Suspect]
     Active Substance: RITUXIMAB
     Indication: Bone marrow transplant
  9. ACETAMINOPHEN [Concomitant]
     Active Substance: ACETAMINOPHEN
     Dates: start: 20240614, end: 20240724
  10. AMLODIPINE [Concomitant]
     Active Substance: AMLODIPINE BESYLATE
     Dates: start: 20240614, end: 20240724
  11. BETAMETHASONE [Concomitant]
     Active Substance: BETAMETHASONE
     Dates: start: 20240614, end: 20240724
  12. CALCIUM [Concomitant]
     Active Substance: CALCIUM
     Dates: start: 20240614, end: 20240724
  13. CETIRIZINE [Concomitant]
     Active Substance: CETIRIZINE HYDROCHLORIDE
     Dates: start: 20240614, end: 20240724
  14. CHOLECALCIFEROL [Concomitant]
     Active Substance: CHOLECALCIFEROL
     Dates: start: 20240614, end: 20240724
  15. FAMOTIDINE [Concomitant]
     Active Substance: FAMOTIDINE
     Dates: start: 20240614, end: 20240724
  16. FLUCONAZOLE [Concomitant]
     Active Substance: FLUCONAZOLE
     Dates: start: 20240614, end: 20240724
  17. FUROSEMIDE [Concomitant]
     Active Substance: FUROSEMIDE
     Dates: start: 20240614, end: 20240724
  18. GRANULOCYTE COLONY-STIMULATING FACTOR NOS [Concomitant]
     Active Substance: GRANULOCYTE COLONY-STIMULATING FACTOR NOS
     Dates: start: 20240614, end: 20240724
  19. HYDROCORTISONE [Concomitant]
     Active Substance: HYDROCORTISONE
     Dates: start: 20240614, end: 20240724
  20. HYDROXYZINE [Concomitant]
     Active Substance: HYDROXYZINE HYDROCHLORIDE
     Dates: start: 20240614, end: 20240724
  21. MICAFUNGIN [Concomitant]
     Active Substance: MICAFUNGIN SODIUM
     Dates: start: 20240614, end: 20240724
  22. LANSOPRAZOLE [Concomitant]
     Active Substance: LANSOPRAZOLE
     Dates: start: 20240614, end: 20240724
  23. VALACYCLOVIR [Concomitant]
     Active Substance: VALACYCLOVIR HYDROCHLORIDE
     Dates: start: 20240614, end: 20240724
  24. LORAZEPAM [Concomitant]
     Active Substance: LORAZEPAM
     Dates: start: 20240614, end: 20240724
  25. MAGNESIUM [Concomitant]
     Active Substance: MAGNESIUM
     Dates: start: 20240614, end: 20240724
  26. METHYLPREDNISOLONE [Concomitant]
     Active Substance: METHYLPREDNISOLONE
     Dates: start: 20240614, end: 20240724
  27. MYCAMINE [Concomitant]
     Active Substance: MICAFUNGIN SODIUM
     Dates: start: 20240614, end: 20240724
  28. MYCOPHENOLATE MOFETIL [Concomitant]
     Active Substance: MYCOPHENOLATE MOFETIL
     Dates: start: 20240614, end: 20240724
  29. NYSTATIN [Concomitant]
     Active Substance: NYSTATIN
     Dates: start: 20240614, end: 20240724
  30. OLANZAPINE [Concomitant]
     Active Substance: OLANZAPINE
     Dates: start: 20240614, end: 20240724
  31. ONDANSETRON [Concomitant]
     Active Substance: ONDANSETRON
     Dates: start: 20240614, end: 20240724
  32. PREDNISONE [Concomitant]
     Active Substance: PREDNISONE
     Dates: start: 20240614, end: 20240724
  33. TACROLIMUS [Concomitant]
     Active Substance: TACROLIMUS
     Dates: start: 20240614, end: 20240724
  34. URSODIOL [Concomitant]
     Active Substance: URSODIOL
     Dates: start: 20240614, end: 20240724

REACTIONS (2)
  - Mucosal inflammation [Recovered/Resolved]
  - Aplastic anaemia [Recovered/Resolved]

NARRATIVE: CASE EVENT DATE: 20240628
